FAERS Safety Report 20630459 (Version 1)
Quarter: 2022Q1

REPORT INFORMATION
  Report Type: Report from Study
  Country: US (occurrence: US)
  Receive Date: 20220324
  Receipt Date: 20220324
  Transmission Date: 20220423
  Serious: Yes (Other)
  Sender: FDA-Public Use
  Company Number: US-JNJFOC-20220339138

PATIENT
  Age: 52 Year
  Sex: Female

DRUGS (19)
  1. MACITENTAN [Suspect]
     Active Substance: MACITENTAN
     Indication: Pulmonary hypertension
     Route: 048
     Dates: start: 20190910
  2. SILDENAFIL [Concomitant]
     Active Substance: SILDENAFIL
  3. ALBUTEROL [Concomitant]
     Active Substance: ALBUTEROL
  4. METOCLOPRAMIDE [Concomitant]
     Active Substance: METOCLOPRAMIDE
  5. STIOLTO RESPIMAT [Concomitant]
     Active Substance: OLODATEROL HYDROCHLORIDE\TIOTROPIUM BROMIDE MONOHYDRATE
  6. FLONASE [Concomitant]
     Active Substance: FLUTICASONE PROPIONATE
  7. PILOCARPINE [Concomitant]
     Active Substance: PILOCARPINE
  8. ATORVASTATIN [Concomitant]
     Active Substance: ATORVASTATIN
  9. URSODIOL [Concomitant]
     Active Substance: URSODIOL
  10. GABAPENTIN [Concomitant]
     Active Substance: GABAPENTIN
  11. SERTRALINE [Concomitant]
     Active Substance: SERTRALINE HYDROCHLORIDE
  12. YUVAFEM [Concomitant]
     Active Substance: ESTRADIOL HEMIHYDRATE
  13. HYDROXYCHLOROQUINE [Concomitant]
     Active Substance: HYDROXYCHLOROQUINE
  14. BUPROPION [Concomitant]
     Active Substance: BUPROPION
  15. RECLAST [Concomitant]
     Active Substance: ZOLEDRONIC ACID
  16. LIDOCAINE [Concomitant]
     Active Substance: LIDOCAINE
  17. VITAMIN B12 [Concomitant]
     Active Substance: CYANOCOBALAMIN
  18. CALCIUM CARBONATE [Concomitant]
     Active Substance: CALCIUM CARBONATE
  19. VITAMIN D3 [Concomitant]
     Active Substance: CHOLECALCIFEROL

REACTIONS (1)
  - Viral upper respiratory tract infection [Unknown]
